FAERS Safety Report 6373029-4 (Version None)
Quarter: 2009Q3

REPORT INFORMATION
  Report Type: 
  Country: None (occurrence: None)
  Receive Date: 20090924
  Receipt Date: 20090723
  Transmission Date: 20100115
  Serious: No
  Sender: FDA-Public Use
  Company Number: US-ASTRAZENECA-2009SE05981

PATIENT
  Age: 56 Year
  Sex: Male
  Weight: 90.7 kg

DRUGS (8)
  1. SEROQUEL XR [Suspect]
     Route: 048
  2. COUMADIN [Concomitant]
     Indication: THROMBOSIS PROPHYLAXIS
  3. AMIODARONE HCL [Concomitant]
     Indication: CARDIAC DISORDER
  4. COREG [Concomitant]
     Indication: HYPERTENSION
  5. AVALIDE [Concomitant]
     Indication: CARDIAC DISORDER
  6. AVALIDE [Concomitant]
     Indication: HYPERTENSION
  7. ABILIFY [Concomitant]
     Indication: DEPRESSION
  8. LAMICTAL [Concomitant]
     Indication: DEPRESSION

REACTIONS (2)
  - BACK INJURY [None]
  - SLEEP DISORDER [None]
